FAERS Safety Report 7479264-6 (Version None)
Quarter: 2011Q2

REPORT INFORMATION
  Report Type: 
  Country: None (occurrence: None)
  Receive Date: 20110513
  Receipt Date: 20110504
  Transmission Date: 20111010
  Serious: Yes (Hospitalization)
  Sender: FDA-Public Use
  Company Number: PL-ASTRAZENECA-2011SE25831

PATIENT
  Age: 143 Day
  Sex: Male
  Weight: 7.8 kg

DRUGS (2)
  1. NASIVIN [Concomitant]
     Indication: UPPER RESPIRATORY TRACT INFECTION
     Route: 045
     Dates: start: 20110501, end: 20110503
  2. PULMICORT [Suspect]
     Indication: UPPER RESPIRATORY TRACT INFECTION
     Route: 048
     Dates: start: 20110501, end: 20110503

REACTIONS (1)
  - INCORRECT ROUTE OF DRUG ADMINISTRATION [None]
